FAERS Safety Report 13131274 (Version 2)
Quarter: 2017Q1

REPORT INFORMATION
  Report Type: Spontaneous
  Country: FR (occurrence: FR)
  Receive Date: 20170119
  Receipt Date: 20170126
  Transmission Date: 20170428
  Serious: Yes (Hospitalization, Other)
  Sender: FDA-Public Use
  Company Number: FR-ASTRAZENECA-2017SE04217

PATIENT
  Age: 20749 Day
  Sex: Female

DRUGS (4)
  1. PULMICORT TURBUHALER [Suspect]
     Active Substance: BUDESONIDE
     Indication: BRONCHITIS
     Route: 055
     Dates: start: 20170104, end: 20170104
  2. LYSINE [Concomitant]
     Active Substance: LYSINE
  3. DOLIPRANE [Concomitant]
     Active Substance: ACETAMINOPHEN
  4. VIVELLEDOT [Concomitant]
     Dosage: 50 UG/24 HOURS TRANSDERMAL DEVICE

REACTIONS (4)
  - Lung disorder [Recovered/Resolved]
  - Throat irritation [Recovered/Resolved]
  - Off label use [Recovered/Resolved]
  - Product use issue [Recovered/Resolved]

NARRATIVE: CASE EVENT DATE: 20170104
